FAERS Safety Report 10176655 (Version 1)
Quarter: 2014Q2

REPORT INFORMATION
  Report Type: Spontaneous
  Country: CH (occurrence: CH)
  Receive Date: 20140516
  Receipt Date: 20140516
  Transmission Date: 20141212
  Serious: Yes (Death)
  Sender: FDA-Public Use
  Company Number: CH-BAYER-2014-071390

PATIENT
  Age: 83 Year
  Sex: Female

DRUGS (9)
  1. ASPIRIN CARDIO [Suspect]
     Dosage: 100 MG, QD
     Dates: start: 2014, end: 20140410
  2. CIPRALEX [Suspect]
     Dosage: 1 DF, QD
     Route: 048
  3. PANTOZOL [Concomitant]
  4. SOTALOL [Concomitant]
  5. CRESTOR [Concomitant]
  6. EUTHYROX [Concomitant]
  7. SEROQUEL [Concomitant]
  8. TRITTICO [Concomitant]
  9. ZANIDIP [Concomitant]

REACTIONS (1)
  - Thalamus haemorrhage [Fatal]
